FAERS Safety Report 4470521-4 (Version None)
Quarter: 2004Q4

REPORT INFORMATION
  Report Type: 
  Country: None (occurrence: None)
  Receive Date: 20041005
  Receipt Date: 20041005
  Transmission Date: 20050328
  Serious: No
  Sender: FDA-Public Use
  Company Number: None

PATIENT
  Sex: Female
  Weight: 79.3795 kg

DRUGS (2)
  1. VIOXX [Suspect]
     Indication: MYOCARDIAL INFARCTION
     Dosage: 25 MG ONCE A DAY ORAL
     Route: 048
     Dates: start: 20001221, end: 20040929
  2. VIOXX [Suspect]
     Indication: PALPITATIONS
     Dosage: 25 MG ONCE A DAY ORAL
     Route: 048
     Dates: start: 20001221, end: 20040929

REACTIONS (1)
  - MYOCARDIAL INFARCTION [None]
